FAERS Safety Report 22235944 (Version 1)
Quarter: 2023Q2

REPORT INFORMATION
  Report Type: Other
  Country: None (occurrence: CN)
  Receive Date: 20230420
  Receipt Date: 20230420
  Transmission Date: 20230721
  Serious: Yes (Death, Life-Threatening, Other)
  Sender: FDA-Public Use
  Company Number: CN-B.Braun Medical Inc.-2140616

PATIENT
  Age: 62 Year
  Sex: Male

DRUGS (2)
  1. ACETAMINOPHEN [Suspect]
     Active Substance: ACETAMINOPHEN
  2. CEFUROXIME [Suspect]
     Active Substance: CEFUROXIME

REACTIONS (4)
  - Acute hepatic failure [Fatal]
  - Hypoglycaemia [Fatal]
  - Hypotension [Fatal]
  - Oxygen saturation decreased [Fatal]
